FAERS Safety Report 6589337-8 (Version None)
Quarter: 2010Q1

REPORT INFORMATION
  Report Type: 
  Country: None (occurrence: None)
  Receive Date: 20100218
  Receipt Date: 20100209
  Transmission Date: 20100710
  Serious: Yes (Hospitalization, Other)
  Sender: FDA-Public Use
  Company Number: GB-JNJFOC-20100205497

PATIENT
  Age: 76 Year
  Sex: Male

DRUGS (1)
  1. RISPERDAL [Suspect]
     Indication: DELIRIUM
     Route: 048

REACTIONS (4)
  - ABASIA [None]
  - AGGRESSION [None]
  - COORDINATION ABNORMAL [None]
  - OFF LABEL USE [None]
